FAERS Safety Report 8534422-4 (Version None)
Quarter: 2012Q3

REPORT INFORMATION
  Report Type: 
  Country: None (occurrence: None)
  Receive Date: 20120724
  Receipt Date: 20120719
  Transmission Date: 20120928
  Serious: Yes (Other)
  Sender: FDA-Public Use
  Company Number: PHHY2012BR062510

PATIENT
  Sex: Female

DRUGS (4)
  1. ALENIA [Concomitant]
     Indication: ASTHMA
  2. FLUNITRAZEPAM [Concomitant]
     Dosage: 1 MG, BID
  3. GILENYA [Suspect]
     Dosage: 0.5 MG, UNK
     Route: 048
  4. FLUOXETINE HCL [Concomitant]
     Dosage: 40 MG, QD

REACTIONS (6)
  - DRY SKIN [None]
  - PRURITUS GENERALISED [None]
  - ALOPECIA [None]
  - WEIGHT DECREASED [None]
  - DECREASED APPETITE [None]
  - DIARRHOEA [None]
